FAERS Safety Report 20697878 (Version 4)
Quarter: 2022Q3

REPORT INFORMATION
  Report Type: Report from Study
  Country: US (occurrence: US)
  Receive Date: 20220412
  Receipt Date: 20220809
  Transmission Date: 20221027
  Serious: Yes (Hospitalization, Other)
  Sender: FDA-Public Use
  Company Number: US-ABBVIE-22K-163-4353618-00

PATIENT
  Age: 61 Year
  Sex: Female

DRUGS (6)
  1. RINVOQ [Suspect]
     Active Substance: UPADACITINIB
     Indication: Rheumatoid arthritis
     Dosage: RINVOQ ER
     Route: 048
     Dates: start: 202111, end: 20220321
  2. RINVOQ [Suspect]
     Active Substance: UPADACITINIB
     Dosage: RINVOQ ER
     Route: 048
     Dates: start: 20220403
  3. RINVOQ [Suspect]
     Active Substance: UPADACITINIB
     Route: 048
  4. JANSSEN COVID-19 VACCINE [Concomitant]
     Active Substance: AD26.COV2.S
     Indication: COVID-19 immunisation
     Dosage: 1ST DOSE
     Route: 030
     Dates: start: 20210324, end: 20210324
  5. JANSSEN COVID-19 VACCINE [Concomitant]
     Active Substance: AD26.COV2.S
     Dosage: 2ND DOSE
     Route: 030
     Dates: start: 2021, end: 2021
  6. JANSSEN COVID-19 VACCINE [Concomitant]
     Active Substance: AD26.COV2.S
     Dosage: 3RD DOSE
     Route: 030
     Dates: start: 20211119, end: 20211119

REACTIONS (10)
  - Joint arthroplasty [Recovering/Resolving]
  - Pain [Unknown]
  - Elbow operation [Recovering/Resolving]
  - Contusion [Unknown]
  - Joint warmth [Unknown]
  - Arthritis bacterial [Unknown]
  - Malaise [Unknown]
  - Fatigue [Unknown]
  - Headache [Unknown]
  - Anaemia [Unknown]

NARRATIVE: CASE EVENT DATE: 20220318
